FAERS Safety Report 4969325-5 (Version None)
Quarter: 2006Q2

REPORT INFORMATION
  Report Type: 
  Country: None (occurrence: None)
  Receive Date: 20060411
  Receipt Date: 20060331
  Transmission Date: 20061013
  Serious: Yes (Other)
  Sender: FDA-Public Use
  Company Number: US-ROCHE-443237

PATIENT
  Sex: Male

DRUGS (1)
  1. ACCUTANE [Suspect]
     Indication: ACNE
     Dates: start: 19980925, end: 19990405

REACTIONS (18)
  - ANAEMIA [None]
  - COELIAC DISEASE [None]
  - COLITIS [None]
  - CROHN'S DISEASE [None]
  - DEPRESSION [None]
  - DRUG EXPOSURE DURING PREGNANCY [None]
  - DRUG HYPERSENSITIVITY [None]
  - HAEMORRHOIDAL HAEMORRHAGE [None]
  - HEADACHE [None]
  - INFLAMMATORY BOWEL DISEASE [None]
  - INSOMNIA [None]
  - LIVE BIRTH [None]
  - NECK INJURY [None]
  - NO ADVERSE EFFECT [None]
  - OVARIAN CYST [None]
  - PREGNANCY [None]
  - SLEEP APNOEA SYNDROME [None]
  - WEIGHT INCREASED [None]
